FAERS Safety Report 23981309 (Version 10)
Quarter: 2025Q1

REPORT INFORMATION
  Report Type: Spontaneous
  Country: GB (occurrence: GB)
  Receive Date: 20240617
  Receipt Date: 20250312
  Transmission Date: 20250409
  Serious: Yes (Hospitalization, Other)
  Sender: MYLAN
  Company Number: GB-MYLANLABS-2024M1052861

PATIENT
  Age: 17 Year
  Sex: Female
  Weight: 38 kg

DRUGS (6)
  1. CLOZARIL [Suspect]
     Active Substance: CLOZAPINE
     Indication: Schizophrenia
  2. CLOZARIL [Suspect]
     Active Substance: CLOZAPINE
  3. CLOZARIL [Suspect]
     Active Substance: CLOZAPINE
  4. CLOZARIL [Suspect]
     Active Substance: CLOZAPINE
     Dosage: 25 MILLIGRAM, AM (IN MORNING)
  5. CLOZARIL [Suspect]
     Active Substance: CLOZAPINE
     Dosage: 87.5 MILLIGRAM, QD (DAILY AT NIGHT)
  6. LURASIDONE [Concomitant]
     Active Substance: LURASIDONE
     Indication: Schizophrenia
     Dosage: 74 MILLIGRAM, QD
     Dates: start: 20231201

REACTIONS (6)
  - Hospitalisation [Unknown]
  - Blood prolactin increased [Recovering/Resolving]
  - Thrombocytopenia [Recovering/Resolving]
  - Sepsis [Recovering/Resolving]
  - Neutrophilia [Not Recovered/Not Resolved]
  - Off label use [Unknown]

NARRATIVE: CASE EVENT DATE: 20240607
